FAERS Safety Report 17532180 (Version 1)
Quarter: 2020Q1

REPORT INFORMATION
  Report Type: Spontaneous
  Country: US (occurrence: US)
  Receive Date: 20200304
  Receipt Date: 20200304
  Transmission Date: 20200409
  Serious: No
  Sender: FDA-Public Use
  Company Number: None

PATIENT
  Age: 45 Year
  Sex: Female

DRUGS (2)
  1. TEMODAR [Suspect]
     Active Substance: TEMOZOLOMIDE
     Indication: MALIGNANT CONNECTIVE TISSUE NEOPLASM
     Dosage: ?          OTHER FREQUENCY:UNKNOWN;?
     Route: 048
     Dates: start: 202003
  2. TEMODAR [Suspect]
     Active Substance: TEMOZOLOMIDE
     Indication: SOFT TISSUE SARCOMA
     Dosage: ?          OTHER FREQUENCY:UNKNOWN;?
     Route: 048
     Dates: start: 202003

REACTIONS (1)
  - Off label use [None]

NARRATIVE: CASE EVENT DATE: 20200304
